FAERS Safety Report 7923621-8 (Version None)
Quarter: 2011Q4

REPORT INFORMATION
  Report Type: 
  Country: None (occurrence: None)
  Receive Date: 20111117
  Receipt Date: 20110207
  Transmission Date: 20120403
  Serious: Yes (Other)
  Sender: FDA-Public Use
  Company Number: US-AMGEN-USASP2011007361

PATIENT
  Age: 43 Year
  Sex: Female

DRUGS (1)
  1. ENBREL [Suspect]
     Indication: PSORIASIS
     Dosage: 50 MG, QWK
     Dates: start: 20101105, end: 20110131

REACTIONS (5)
  - GAIT DISTURBANCE [None]
  - GASTRIC INFECTION [None]
  - EAR INFECTION [None]
  - PYREXIA [None]
  - PSORIASIS [None]
